FAERS Safety Report 5192010-4 (Version None)
Quarter: 2006Q4

REPORT INFORMATION
  Report Type: 
  Country: None (occurrence: None)
  Receive Date: 20061220
  Receipt Date: 20061205
  Transmission Date: 20070319
  Serious: Yes (Hospitalization)
  Sender: FDA-Public Use
  Company Number: 15324

PATIENT
  Age: 69 Year
  Sex: Male

DRUGS (1)
  1. CARBOPLATIN MFT: MAYNE [Suspect]
     Dates: start: 20061009, end: 20061030

REACTIONS (4)
  - HYPOTENSION [None]
  - PNEUMONIA PNEUMOCOCCAL [None]
  - PULMONARY TOXICITY [None]
  - THROMBOCYTOPENIA [None]
